FAERS Safety Report 10673751 (Version 1)
Quarter: 2014Q4

REPORT INFORMATION
  Report Type: Spontaneous
  Country: FR (occurrence: FR)
  Receive Date: 20141224
  Receipt Date: 20141224
  Transmission Date: 20150529
  Serious: Yes (Hospitalization)
  Sender: FDA-Public Use
  Company Number: FR-ROCHE-1513159

PATIENT
  Age: 94 Year
  Sex: Male

DRUGS (3)
  1. MOPRAL [Concomitant]
     Active Substance: OMEPRAZOLE SODIUM
  2. APRANAX [Suspect]
     Active Substance: NAPROXEN
     Indication: TENDON DISORDER
     Route: 048
     Dates: start: 20141124, end: 20141124
  3. DEBRIDAT [Concomitant]
     Active Substance: TRIMEBUTINE MALEATE

REACTIONS (2)
  - Genital erosion [Not Recovered/Not Resolved]
  - Oral mucosa erosion [Recovering/Resolving]

NARRATIVE: CASE EVENT DATE: 20141125
